FAERS Safety Report 7933903-1 (Version None)
Quarter: 2011Q4

REPORT INFORMATION
  Report Type: 
  Country: None (occurrence: None)
  Receive Date: 20111122
  Receipt Date: 20111107
  Transmission Date: 20120403
  Serious: Yes (Hospitalization)
  Sender: FDA-Public Use
  Company Number: US-ROCHE-1014947

PATIENT
  Sex: Female

DRUGS (4)
  1. HERCEPTIN [Suspect]
     Route: 042
  2. CARBOPLATIN [Suspect]
     Indication: BREAST CANCER METASTATIC
     Route: 042
     Dates: start: 20051130
  3. IXABEPILONE [Suspect]
     Indication: BREAST CANCER METASTATIC
     Route: 042
     Dates: start: 20051130
  4. HERCEPTIN [Suspect]
     Indication: BREAST CANCER METASTATIC
     Route: 042
     Dates: start: 20051130

REACTIONS (2)
  - EMBOLISM [None]
  - HAEMATURIA [None]
